FAERS Safety Report 6961443-5 (Version None)
Quarter: 2010Q3

REPORT INFORMATION
  Report Type: 
  Country: None (occurrence: None)
  Receive Date: 20100901
  Receipt Date: 20100825
  Transmission Date: 20110219
  Serious: Yes (Hospitalization, Other)
  Sender: FDA-Public Use
  Company Number: US-PFIZER INC-2010081698

PATIENT
  Sex: Female
  Weight: 61.234 kg

DRUGS (15)
  1. CELEBREX [Suspect]
     Indication: ARTHRITIS
     Dosage: 200 MG, 1X/DAY
     Route: 048
     Dates: start: 20100101
  2. NAPROXEN [Suspect]
     Indication: ARTHRITIS
     Dosage: 500 MG, 2X/DAY
     Route: 048
     Dates: end: 20100101
  3. NAPROXEN [Suspect]
     Dosage: 1 G, UNK
     Dates: end: 20070101
  4. TRICOR [Suspect]
     Dosage: 145 MG, UNK
     Route: 048
     Dates: end: 20100101
  5. LOVASTATIN [Suspect]
     Dosage: 60 MG, UNK
     Dates: end: 20100101
  6. CLIMARA [Suspect]
     Indication: HOT FLUSH
     Dosage: UNK
     Route: 062
     Dates: start: 20090101
  7. PREMPRO [Concomitant]
     Indication: HOT FLUSH
     Dosage: UNK
     Dates: end: 20090101
  8. ACETYLSALICYLIC ACID [Concomitant]
     Dosage: UNK
     Dates: end: 20070101
  9. ACETYLSALICYLIC ACID [Concomitant]
     Dosage: UNK
     Dates: start: 20070101
  10. HYZAAR [Concomitant]
     Indication: BLOOD PRESSURE
     Dosage: UNK
  11. FENTANYL [Concomitant]
     Dosage: FREQUENCY: EVERY 72 HOURS,
     Route: 062
  12. ACIPHEX [Concomitant]
     Dosage: 20 MG, 1X/DAY
  13. WELLBUTRIN XL [Concomitant]
     Dosage: 150 MG, 2X/DAY
  14. RESTORIL [Concomitant]
     Indication: SLEEP DISORDER
     Dosage: 15 MG, UNK
  15. HYDROCHLOROTHIAZIDE [Concomitant]
     Indication: HYPERTENSION

REACTIONS (2)
  - ALOPECIA [None]
  - MUSCULOSKELETAL DISCOMFORT [None]
